FAERS Safety Report 9694234 (Version 1)
Quarter: 2013Q4

REPORT INFORMATION
  Report Type: Spontaneous
  Country: US (occurrence: US)
  Receive Date: 20131118
  Receipt Date: 20131118
  Transmission Date: 20140711
  Serious: No
  Sender: FDA-Public Use
  Company Number: US-PFIZER INC-2013328151

PATIENT
  Age: 46 Year
  Sex: Male
  Weight: 70.3 kg

DRUGS (3)
  1. CHANTIX [Suspect]
     Indication: SMOKING CESSATION THERAPY
     Dosage: 0.5 MG, DAILY
     Dates: start: 201310, end: 201310
  2. CHANTIX [Suspect]
     Dosage: 0.5 MG, 2X/DAY
     Dates: start: 201310, end: 201310
  3. CHANTIX [Suspect]
     Dosage: 1 MG, 2X/DAY
     Dates: start: 201310, end: 201311

REACTIONS (6)
  - Restlessness [Unknown]
  - Social problem [Unknown]
  - Abnormal faeces [Unknown]
  - Constipation [Unknown]
  - Insomnia [Unknown]
  - Nausea [Unknown]
